FAERS Safety Report 8256266-3 (Version None)
Quarter: 2012Q1

REPORT INFORMATION
  Report Type: 
  Country: None (occurrence: None)
  Receive Date: 20120330
  Receipt Date: 20120315
  Transmission Date: 20120608
  Serious: Yes (Death, Hospitalization, Other)
  Sender: FDA-Public Use
  Company Number: 2012P1010697

PATIENT
  Age: 53 Year
  Sex: Female

DRUGS (9)
  1. TAXOL [Concomitant]
  2. RAMELTEON [Concomitant]
  3. ISENTRESS [Suspect]
     Indication: HIV INFECTION
     Dosage: 400 MG, BID, PO
     Route: 048
     Dates: start: 20110420, end: 20120224
  4. PARAPLATIN AQ [Concomitant]
  5. NORVASC [Suspect]
     Indication: HYPERTENSION
     Dosage: 5 MG, QD, PO
     Route: 048
     Dates: start: 20070621, end: 20120224
  6. EPZICOM [Concomitant]
  7. TOPOTECAN [Concomitant]
  8. PEPCID [Suspect]
     Indication: GASTRIC ULCER
     Dosage: 20 MG, QD, PO
     Route: 048
     Dates: start: 20010702, end: 20120224
  9. DEXAMETHASONE SODIUM PHOSPHATE [Concomitant]

REACTIONS (12)
  - SEASONAL ALLERGY [None]
  - HYPERTENSION [None]
  - HIV INFECTION [None]
  - TACHYCARDIA [None]
  - CARDIAC DISORDER [None]
  - SINUS TACHYCARDIA [None]
  - HYPERLIPIDAEMIA [None]
  - DRUG HYPERSENSITIVITY [None]
  - ASCITES [None]
  - FOOD ALLERGY [None]
  - CERVIX CARCINOMA [None]
  - PALPITATIONS [None]
